FAERS Safety Report 19180083 (Version 1)
Quarter: 2021Q2

REPORT INFORMATION
  Report Type: Spontaneous
  Country: US (occurrence: US)
  Receive Date: 20210426
  Receipt Date: 20210426
  Transmission Date: 20210717
  Serious: Yes (Life-Threatening, Hospitalization)
  Sender: FDA-Public Use
  Company Number: None

PATIENT
  Age: 25 Year
  Sex: Female
  Weight: 89.9 kg

DRUGS (3)
  1. PALYNZIQ [Suspect]
     Active Substance: PEGVALIASE-PQPZ
     Indication: PHENYLKETONURIA
     Dosage: ?          OTHER FREQUENCY:ONE WEEKLY;?
     Route: 058
     Dates: start: 20210310
  2. FAMOTIDINE. [Concomitant]
     Active Substance: FAMOTIDINE
     Dates: start: 20210301
  3. CETIRZINE [Concomitant]
     Dates: start: 20210301

REACTIONS (10)
  - Chest discomfort [None]
  - Urticaria [None]
  - Dyspnoea [None]
  - Anxiety [None]
  - Hypoaesthesia [None]
  - Dizziness [None]
  - Nausea [None]
  - Panic attack [None]
  - Pruritus [None]
  - Multiple allergies [None]

NARRATIVE: CASE EVENT DATE: 20210422
